FAERS Safety Report 8977373 (Version 1)
Quarter: 2012Q4

REPORT INFORMATION
  Report Type: 
  Country: US (occurrence: US)
  Receive Date: 20121220
  Receipt Date: 20121220
  Transmission Date: 20130627
  Serious: No
  Sender: FDA-Public Use
  Company Number: US-TEVA-374609USA

PATIENT
  Age: 75 Year
  Sex: Female
  Weight: 64.01 kg

DRUGS (6)
  1. AZILECT [Suspect]
     Indication: PARKINSON^S DISEASE
     Dosage: QD
     Route: 048
     Dates: start: 20121121, end: 20121203
  2. COUMADIN [Concomitant]
     Route: 048
  3. AMIODARONE [Concomitant]
     Route: 048
  4. TOPROL [Concomitant]
     Route: 048
  5. HCTZ [Concomitant]
     Route: 048
  6. ASPIRIN [Concomitant]
     Route: 048

REACTIONS (4)
  - Nausea [Recovered/Resolved]
  - Eructation [Recovered/Resolved]
  - Vomiting [Recovered/Resolved]
  - Diarrhoea [Not Recovered/Not Resolved]
